FAERS Safety Report 24432936 (Version 3)
Quarter: 2025Q2

REPORT INFORMATION
  Report Type: Report from Study
  Country: US (occurrence: US)
  Receive Date: 20241014
  Receipt Date: 20250620
  Transmission Date: 20250717
  Serious: Yes (Other)
  Sender: ABBVIE
  Company Number: US-ABBVIE-5960020

PATIENT
  Age: 77 Year
  Sex: Female

DRUGS (1)
  1. VENETOCLAX [Suspect]
     Active Substance: VENETOCLAX
     Indication: Primary amyloidosis
     Dosage: STRENGTH: 100 MG, WITH A MEAL AND WATER AT APPROXIMATELY THE SAME TIME EACH DAY. SWALLOW WHOLE. D...
     Route: 048

REACTIONS (1)
  - Myocardial infarction [Unknown]

NARRATIVE: CASE EVENT DATE: 20240901
